FAERS Safety Report 24100612 (Version 2)
Quarter: 2025Q1

REPORT INFORMATION
  Report Type: Spontaneous
  Country: US (occurrence: US)
  Receive Date: 20240717
  Receipt Date: 20250314
  Transmission Date: 20250409
  Serious: Yes (Other)
  Sender: NOVO NORDISK
  Company Number: US-NOVOPROD-1221846

PATIENT
  Age: 64 Year
  Sex: Female

DRUGS (4)
  1. OZEMPIC [Suspect]
     Active Substance: SEMAGLUTIDE
     Indication: Type 2 diabetes mellitus
     Route: 058
     Dates: start: 20231118
  2. OZEMPIC [Suspect]
     Active Substance: SEMAGLUTIDE
     Dates: start: 202411
  3. OZEMPIC [Suspect]
     Active Substance: SEMAGLUTIDE
     Dates: start: 202408
  4. GLIPIZIDE [Concomitant]
     Active Substance: GLIPIZIDE
     Indication: Product used for unknown indication

REACTIONS (8)
  - Fall [Not Recovered/Not Resolved]
  - Tendon rupture [Not Recovered/Not Resolved]
  - Meniscus injury [Not Recovered/Not Resolved]
  - Food craving [Recovered/Resolved]
  - Hypoaesthesia [Recovered/Resolved]
  - Blood glucose decreased [Recovered/Resolved]
  - Constipation [Not Recovered/Not Resolved]
  - Off label use [Unknown]

NARRATIVE: CASE EVENT DATE: 20241101
